FAERS Safety Report 23596147 (Version 3)
Quarter: 2024Q1

REPORT INFORMATION
  Report Type: Spontaneous
  Country: BR (occurrence: BR)
  Receive Date: 20240305
  Receipt Date: 20240319
  Transmission Date: 20240409
  Serious: Yes (Hospitalization)
  Sender: FDA-Public Use
  Company Number: BR-PFIZER INC-PV202400029552

PATIENT
  Age: 43 Year
  Sex: Female

DRUGS (11)
  1. DOXORUBICIN HYDROCHLORIDE [Suspect]
     Active Substance: DOXORUBICIN HYDROCHLORIDE
     Indication: Diffuse large B-cell lymphoma stage III
     Dosage: UNK, CYCLIC, EIGHT CYCLES (R-CHOP)
     Dates: start: 2016
  2. CARBOPLATIN [Suspect]
     Active Substance: CARBOPLATIN
     Indication: Diffuse large B-cell lymphoma stage III
     Dosage: UNK, CYCLIC, FOUR CYCLES (R-ICE PROTOCOL)
     Dates: start: 2016
  3. VINCRISTINE SULFATE [Suspect]
     Active Substance: VINCRISTINE SULFATE
     Indication: Diffuse large B-cell lymphoma stage III
     Dosage: UNK, CYCLIC, EIGHT CYCLES (R-CHOP)
     Dates: start: 2016
  4. IFOSFAMIDE [Suspect]
     Active Substance: IFOSFAMIDE
     Indication: Diffuse large B-cell lymphoma stage III
     Dosage: UNK, CYCLIC, FOUR CYCLES (R-ICE PROTOCOL)
     Dates: start: 2016
  5. OXALIPLATIN [Suspect]
     Active Substance: OXALIPLATIN
     Indication: Diffuse large B-cell lymphoma stage III
     Dosage: UNK, CYCLIC, FOUR CYCLES (GEMOX)
     Dates: start: 2016
  6. GEMCITABINE HYDROCHLORIDE [Suspect]
     Active Substance: GEMCITABINE HYDROCHLORIDE
     Indication: Diffuse large B-cell lymphoma stage III
     Dosage: UNK, CYCLIC, FOUR CYCLES (GEMOX)
     Dates: start: 2016
  7. ETOPOSIDE [Suspect]
     Active Substance: ETOPOSIDE
     Indication: Diffuse large B-cell lymphoma stage III
     Dosage: UNK, CYCLIC, FOUR CYCLES (R-ICE PROTOCOL)
     Dates: start: 2016
  8. RITUXIMAB [Suspect]
     Active Substance: RITUXIMAB
     Indication: Diffuse large B-cell lymphoma stage III
     Dosage: UNK, CYCLIC, EIGHT CYCLES (R-CHOP)
     Dates: start: 2016
  9. CYCLOPHOSPHAMIDE [Suspect]
     Active Substance: CYCLOPHOSPHAMIDE
     Indication: Diffuse large B-cell lymphoma stage III
     Dosage: UNK, CYCLIC, EIGHT CYCLES (R-CHOP)
     Dates: start: 2016
  10. PREDNISONE [Suspect]
     Active Substance: PREDNISONE
     Indication: Diffuse large B-cell lymphoma stage III
     Dosage: UNK, CYCLIC, EIGHT CYCLES (R-CHOP)
     Dates: start: 2016
  11. MESNA [Suspect]
     Active Substance: MESNA
     Indication: Diffuse large B-cell lymphoma stage III
     Dosage: UNK, CYCLIC, FOUR CYCLES (R-ICE PROTOCOL)
     Dates: start: 2016

REACTIONS (1)
  - Cardiotoxicity [Recovered/Resolved]
